FAERS Safety Report 6509143-X (Version None)
Quarter: 2009Q4

REPORT INFORMATION
  Report Type: 
  Country: None (occurrence: None)
  Receive Date: 20091221
  Receipt Date: 20091209
  Transmission Date: 20100525
  Serious: Yes (Other)
  Sender: FDA-Public Use
  Company Number: US-AMGEN-US379283

PATIENT
  Sex: Female
  Weight: 84 kg

DRUGS (3)
  1. NPLATE [Suspect]
     Indication: IDIOPATHIC THROMBOCYTOPENIC PURPURA
     Dates: start: 20090901
  2. PREDNISONE [Concomitant]
  3. ANTIHYPERTENSIVE MEDICATION NOS [Concomitant]

REACTIONS (2)
  - DRY SKIN [None]
  - SKIN HAEMORRHAGE [None]
